FAERS Safety Report 21927326 (Version 2)
Quarter: 2023Q2

REPORT INFORMATION
  Report Type: Spontaneous
  Country: US (occurrence: US)
  Receive Date: 20230130
  Receipt Date: 20230627
  Transmission Date: 20230721
  Serious: Yes (Other)
  Sender: FDA-Public Use
  Company Number: US-JNJFOC-20230148431

PATIENT
  Age: 2 Year
  Sex: Male

DRUGS (9)
  1. TYLENOL REGULAR STRENGTH [Suspect]
     Active Substance: ACETAMINOPHEN
     Indication: Headache
     Dosage: FROM AN UNSPECIFIED DATE IN APR-2019 TO AN UNSPECIFIED DATE, THE PATIENTS MOTHER TOOK TYLENOL REGUL
     Route: 064
     Dates: start: 201904
  2. TYLENOL REGULAR STRENGTH [Suspect]
     Active Substance: ACETAMINOPHEN
     Indication: Pain
  3. TYLENOL EXTRA STRENGTH [Suspect]
     Active Substance: ACETAMINOPHEN
     Indication: Headache
     Dosage: FROM UNSPECIFIED DATES IN APR-2017 TO JAN-2018, THE PATIENTS MOTHER TOOK TYLENOL EXTRA STRENGTH TAB
     Route: 064
     Dates: start: 201704, end: 201801
  4. TYLENOL EXTRA STRENGTH [Suspect]
     Active Substance: ACETAMINOPHEN
     Indication: Pain
  5. TYLENOL [Suspect]
     Active Substance: ACETAMINOPHEN
     Indication: Nasopharyngitis
     Dosage: FROM AN UNSPECIFIED DATE IN NOV-2017 TO DEC-2017, THE PATIENTS MOTHER TOOK TYLENOL UNSPECIFIED, (FO
     Route: 064
     Dates: start: 201711, end: 201712
  6. TYLENOL [Suspect]
     Active Substance: ACETAMINOPHEN
     Indication: Cough
  7. ACETAMINOPHEN [Suspect]
     Active Substance: ACETAMINOPHEN
     Indication: Analgesic therapy
     Dosage: FROM AN UNSPECIFIED DATE IN APR-2017 TO JAN-2018, THE PATIENTS MOTHER TOOK WALMART EQUATE TABLET 32
     Route: 064
     Dates: start: 201704, end: 201801
  8. ACETAMINOPHEN [Suspect]
     Active Substance: ACETAMINOPHEN
     Indication: Headache
     Dosage: THE PATIENTS MOTHER TOOK RITE AID BRANDED ACETAMINOPHEN TABLETS 325 MG, 2 OR 3 TIMES A WEEK (TABLET
     Route: 064
     Dates: start: 201704, end: 201801
  9. ACETAMINOPHEN [Suspect]
     Active Substance: ACETAMINOPHEN
     Indication: Pain

REACTIONS (2)
  - Autism spectrum disorder [Unknown]
  - Foetal exposure during pregnancy [Unknown]

NARRATIVE: CASE EVENT DATE: 20200201
